FAERS Safety Report 24916870 (Version 4)
Quarter: 2025Q1

REPORT INFORMATION
  Report Type: Spontaneous
  Country: US (occurrence: US)
  Receive Date: 20250203
  Receipt Date: 20250325
  Transmission Date: 20250408
  Serious: No
  Sender: BAUSCH AND LOMB
  Company Number: US-BAUSCH-BL-2025-001242

PATIENT
  Age: 35 Year
  Sex: Female

DRUGS (1)
  1. TRULANCE [Suspect]
     Active Substance: PLECANATIDE
     Indication: Constipation
     Route: 065

REACTIONS (3)
  - Drug ineffective [Unknown]
  - Product packaging quantity issue [Unknown]
  - Product physical issue [Unknown]
